FAERS Safety Report 9745367 (Version 1)
Quarter: 2013Q4

REPORT INFORMATION
  Report Type: Spontaneous
  Country: FR (occurrence: FR)
  Receive Date: 20131211
  Receipt Date: 20131211
  Transmission Date: 20140711
  Serious: Yes (Hospitalization)
  Sender: FDA-Public Use
  Company Number: PHHY2013FR142280

PATIENT
  Age: 83 Year
  Sex: Male

DRUGS (17)
  1. TASIGNA [Suspect]
     Indication: CHRONIC MYELOID LEUKAEMIA
     Dosage: 150 MG, BID
     Route: 048
     Dates: start: 20130921, end: 20130926
  2. ZITHROMAX [Concomitant]
     Dates: start: 20130716
  3. FUROSEMIDE [Concomitant]
     Dosage: 40 MG, BID
     Route: 048
  4. DIFFU K [Concomitant]
  5. RAMIPRIL [Concomitant]
     Dosage: 0.5 DF, QD
     Route: 048
  6. BISOPROLOL [Concomitant]
     Dosage: 1.25 MG
  7. KARDEGIC [Concomitant]
     Dosage: 75 MG, QD
  8. AMIODARONE [Concomitant]
     Dosage: 200 MG, QD
  9. PANTOPRAZOLE [Concomitant]
     Dosage: 20 MG, QD
  10. SERESTA [Concomitant]
     Dosage: 50 MG
  11. LYRICA [Concomitant]
     Dosage: 25 MG, QID
     Route: 048
  12. MIANSERINE [Concomitant]
     Dosage: 0.5 DF, QD
  13. ALFUZOSINE [Concomitant]
     Dosage: 10 MG, QD
  14. CLARADOL [Concomitant]
     Dosage: 500 MG
  15. VENTOLINE [Concomitant]
  16. SPIRIVA [Concomitant]
     Dosage: 1 DF, QD
  17. SERETIDE [Concomitant]
     Dosage: 1 DF, BID

REACTIONS (4)
  - Food intolerance [Recovered/Resolved]
  - Nausea [Recovered/Resolved]
  - Vomiting [Recovered/Resolved]
  - Asthenia [Recovered/Resolved]
